FAERS Safety Report 13725814 (Version 1)
Quarter: 2017Q3

REPORT INFORMATION
  Report Type: Spontaneous
  Country: US (occurrence: US)
  Receive Date: 20170706
  Receipt Date: 20170706
  Transmission Date: 20171127
  Serious: No
  Sender: FDA-Public Use
  Company Number: None

PATIENT
  Age: 68 Year
  Sex: Male
  Weight: 81 kg

DRUGS (2)
  1. AMOXIL [Suspect]
     Active Substance: AMOXICILLIN
     Indication: EAR INFECTION
     Dosage: ?          OTHER STRENGTH:MG;QUANTITY:14 TABLET(S);?
     Route: 048
     Dates: start: 20170627, end: 20170704
  2. SUMITRIPTAN [Concomitant]

REACTIONS (3)
  - Drug ineffective [None]
  - Product solubility abnormal [None]
  - Medication residue present [None]

NARRATIVE: CASE EVENT DATE: 20170705
